FAERS Safety Report 6978836-2 (Version None)
Quarter: 2010Q3

REPORT INFORMATION
  Report Type: 
  Country: None (occurrence: None)
  Receive Date: 20100913
  Receipt Date: 20100901
  Transmission Date: 20110219
  Serious: Yes (Other)
  Sender: FDA-Public Use
  Company Number: US-PFIZER INC-2010110613

PATIENT
  Sex: Male
  Weight: 117.1 kg

DRUGS (5)
  1. NEURONTIN [Suspect]
     Indication: TRIGEMINAL NEURALGIA
     Dosage: UNK
  2. LUNESTA [Concomitant]
     Indication: INSOMNIA
     Dosage: 3 MG, 1X/DAY
     Route: 048
  3. CELEXA [Concomitant]
     Indication: DEPRESSION
     Dosage: 20 MG, 1X/DAY
     Route: 048
  4. ALEVE (CAPLET) [Concomitant]
     Indication: PAIN
     Dosage: 220 MG, 6X/DAY
     Route: 048
  5. XALATAN [Concomitant]
     Indication: GLAUCOMA
     Dosage: UNK
     Route: 047

REACTIONS (3)
  - DRUG INEFFECTIVE [None]
  - HIP SURGERY [None]
  - KNEE OPERATION [None]
